FAERS Safety Report 24175735 (Version 2)
Quarter: 2024Q3

REPORT INFORMATION
  Report Type: Report from Study
  Country: DE (occurrence: DE)
  Receive Date: 20240805
  Receipt Date: 20240912
  Transmission Date: 20241017
  Serious: Yes (Death)
  Sender: BOEHRINGER INGELHEIM
  Company Number: DE-BoehringerIngelheim-2024-BI-043813

PATIENT
  Age: 73 Year
  Sex: Male
  Weight: 88 kg

DRUGS (3)
  1. NINTEDANIB [Suspect]
     Active Substance: NINTEDANIB
     Indication: Interstitial lung disease
     Route: 048
     Dates: start: 20221111, end: 20240229
  2. AZATHIOPRINE [Concomitant]
     Active Substance: AZATHIOPRINE
     Indication: Pulmonary hypertension
     Route: 048
     Dates: start: 2021, end: 20240229
  3. PREDNISOLONE [Concomitant]
     Active Substance: PREDNISOLONE
     Indication: Pulmonary hypertension
     Route: 048
     Dates: start: 2021, end: 20240229

REACTIONS (1)
  - Death [Fatal]

NARRATIVE: CASE EVENT DATE: 20240229
